FAERS Safety Report 12536224 (Version 1)
Quarter: 2016Q3

REPORT INFORMATION
  Report Type: Spontaneous
  Country: FR (occurrence: FR)
  Receive Date: 20160707
  Receipt Date: 20160707
  Transmission Date: 20161109
  Serious: Yes (Other)
  Sender: FDA-Public Use
  Company Number: FR-GLAXOSMITHKLINE-FR2016GSK096615

PATIENT
  Age: 61 Year
  Sex: Male

DRUGS (20)
  1. DEXAMETHASONE. [Concomitant]
     Active Substance: DEXAMETHASONE
     Dosage: UNK
     Dates: start: 2016
  2. ENDOXAN [Concomitant]
     Active Substance: CYCLOPHOSPHAMIDE
     Dosage: UNK
     Dates: start: 2016
  3. TAZOCILLINE [Concomitant]
     Active Substance: PIPERACILLIN SODIUM\TAZOBACTAM SODIUM
     Dosage: 4 G, SINGLE
     Dates: start: 20160506, end: 20160506
  4. EFFEXOR [Concomitant]
     Active Substance: VENLAFAXINE HYDROCHLORIDE
     Dosage: 37.5 MG, 1D
  5. VELCADE [Concomitant]
     Active Substance: BORTEZOMIB
     Dosage: UNK
     Dates: start: 201503
  6. TRIFLUCAN [Concomitant]
     Active Substance: FLUCONAZOLE
     Dosage: 400 MG, TID
     Route: 042
     Dates: start: 20160502, end: 20160510
  7. ZELITREX [Concomitant]
     Active Substance: VALACYCLOVIR HYDROCHLORIDE
     Dosage: UNK
     Dates: end: 2016
  8. BACTRIM [Concomitant]
     Active Substance: SULFAMETHOXAZOLE\TRIMETHOPRIM
     Dosage: 1 UNK, Z
     Dates: end: 2016
  9. OXYNORM [Suspect]
     Active Substance: OXYCODONE HYDROCHLORIDE
     Indication: MUCOSAL INFLAMMATION
     Dosage: UNK
     Route: 042
     Dates: start: 20160504, end: 20160508
  10. REVLIMID [Concomitant]
     Active Substance: LENALIDOMIDE
     Dosage: UNK
     Dates: start: 2016
  11. ZOVIRAX [Suspect]
     Active Substance: ACYCLOVIR
     Indication: PROPHYLAXIS
     Dosage: UNK
     Dates: start: 20160502, end: 20160510
  12. ALPRAZOLAM. [Suspect]
     Active Substance: ALPRAZOLAM
     Indication: ANXIETY
     Dosage: 0.5 MG, SINGLE
     Route: 048
     Dates: start: 20160507, end: 20160507
  13. TIAPRIDAL [Concomitant]
     Active Substance: TIAPRIDE HYDROCHLORIDE
     Dosage: UNK
     Dates: start: 20160508, end: 20160508
  14. XANAX [Concomitant]
     Active Substance: ALPRAZOLAM
     Dosage: 0.5 MG, SINGLE
     Dates: start: 20160507, end: 20160507
  15. LYRICA [Concomitant]
     Active Substance: PREGABALIN
     Dosage: 100 MG, BID
  16. STILNOX [Concomitant]
     Active Substance: ZOLPIDEM TARTRATE
     Indication: INSOMNIA
     Dosage: UNK
     Route: 048
     Dates: end: 20160510
  17. CAELYX [Concomitant]
     Active Substance: DOXORUBICIN HYDROCHLORIDE
     Dosage: UNK
     Dates: start: 201503
  18. MOPRAL [Concomitant]
     Active Substance: OMEPRAZOLE SODIUM
     Dosage: 20 MG, 1D
  19. MELPHALAN [Concomitant]
     Active Substance: MELPHALAN
     Dosage: UNK
     Dates: start: 20160429
  20. PHOCYTAN [Concomitant]
     Active Substance: .ALPHA.-GLUCOSE-1-PHOSPHATE
     Indication: HYPOPHOSPHATAEMIA
     Dosage: UNK
     Dates: start: 201605

REACTIONS (3)
  - Neurotoxicity [Recovered/Resolved]
  - Confusional state [Recovered/Resolved]
  - Hallucination [Recovered/Resolved]

NARRATIVE: CASE EVENT DATE: 20160508
